FAERS Safety Report 18326024 (Version 2)
Quarter: 2023Q1

REPORT INFORMATION
  Report Type: Spontaneous
  Country: DE (occurrence: DE)
  Receive Date: 20200929
  Receipt Date: 20230206
  Transmission Date: 20230418
  Serious: Yes (Hospitalization)
  Sender: FDA-Public Use
  Company Number: DE-ADRED-05453-01

PATIENT
  Age: 76 Year
  Sex: Female
  Weight: 62 kg

DRUGS (10)
  1. AMIODARONE [Suspect]
     Active Substance: AMIODARONE
     Indication: Product used for unknown indication
     Dosage: UNK MG DISCONTINUED 12-FEB-2020 TABLET
     Route: 048
  2. ATORVASTATIN [Concomitant]
     Active Substance: ATORVASTATIN
     Dosage: 40 MILLIGRAM, QD 0-0-1-0, TABLET
     Route: 048
  3. CHOLECALCIFEROL [Concomitant]
     Active Substance: CHOLECALCIFEROL
     Dosage: 1000 INTERNATIONAL UNIT, QD 1-0-0-0, TABLET
     Route: 048
  4. CANDESARTAN [Concomitant]
     Active Substance: CANDESARTAN
     Dosage: 16 MILLIGRAM, QD 1-0-0-0, TABLET
     Route: 048
  5. METOPROLOL [Concomitant]
     Active Substance: METOPROLOL
     Dosage: 95 MILLIGRAM, BID 1-0-1-0, RETARD-TABLET
     Route: 048
  6. METOPROLOL [Concomitant]
     Active Substance: METOPROLOL
     Dosage: 500 MILLIGRAM, BID 1-0-1-0 TABLET
     Route: 048
  7. FUROSEMIDE [Concomitant]
     Active Substance: FUROSEMIDE
     Dosage: 40 MILLIGRAM, QD, 1-0-0-0, TABLET
     Route: 048
  8. DABIGATRAN [Concomitant]
     Active Substance: DABIGATRAN
     Dosage: 150 MILLIGRAM, BID 1-0-1-0 CAPSULE
     Route: 048
  9. DIHYDROCODEINE [Concomitant]
     Active Substance: DIHYDROCODEINE
     Dosage: 10 GTT, 0-0-0-1, TROPFEN, QD
     Route: 048
  10. METFORMIN [Concomitant]
     Active Substance: METFORMIN HYDROCHLORIDE
     Dosage: 500 MG, 1-0-1-0, TABLETTEN
     Route: 048

REACTIONS (5)
  - Cough [Unknown]
  - Acute respiratory failure [Unknown]
  - Apnoea [Unknown]
  - Alveolitis [Unknown]
  - Dyspnoea [Unknown]
